FAERS Safety Report 24128557 (Version 1)
Quarter: 2024Q3

REPORT INFORMATION
  Report Type: Spontaneous
  Country: GB (occurrence: GB)
  Receive Date: 20240723
  Receipt Date: 20240723
  Transmission Date: 20241017
  Serious: Yes (Other)
  Sender: TEVA
  Company Number: GB-MHRA-TPP44986497C949673YC1720799610125

PATIENT
  Age: 60 Year
  Sex: Male
  Weight: 93 kg

DRUGS (10)
  1. EZETIMIBE [Suspect]
     Active Substance: EZETIMIBE
     Dosage: BEMPEDOIC ACID 180MG / EZETIMIBE 10MG TABLETS
     Route: 065
  2. CHLORAMPHENICOL [Concomitant]
     Active Substance: CHLORAMPHENICOL
     Dosage: APPLY 4 TIMES/DAY, DURATION: 6 DAYS
     Dates: start: 20240621, end: 20240626
  3. HYDROCHLOROTHIAZIDE\LOSARTAN POTASSIUM [Concomitant]
     Active Substance: HYDROCHLOROTHIAZIDE\LOSARTAN POTASSIUM
     Dosage: 1 TABLET ONCE DAILY
     Dates: start: 20240116
  4. BEMPEDOIC ACID\EZETIMIBE [Concomitant]
     Active Substance: BEMPEDOIC ACID\EZETIMIBE
     Dosage: TAKE ONE DAILY
     Dates: start: 20240116
  5. ALBUTEROL [Concomitant]
     Active Substance: ALBUTEROL
     Dosage: TIME INTERVAL: AS NECESSARY: INHALE 2 DOSES AS NEEDED
     Route: 055
     Dates: start: 20240116
  6. BECLOMETHASONE\FORMOTEROL [Concomitant]
     Active Substance: BECLOMETHASONE\FORMOTEROL
     Dosage: MAINTENANCE, 2 PUFFS TWICE A DAY. FOR IMMEDIATE...
     Dates: start: 20240116
  7. SPIRIVA [Concomitant]
     Active Substance: TIOTROPIUM BROMIDE MONOHYDRATE
     Dosage: TAKE TWO PUFFS ONCE DAILY
     Dates: start: 20240116
  8. BEMPEDOIC ACID [Suspect]
     Active Substance: BEMPEDOIC ACID
     Dosage: BEMPEDOIC ACID 180MG / EZETIMIBE 10MG TABLETS
     Route: 065
     Dates: start: 20240712
  9. SILDENAFIL [Concomitant]
     Active Substance: SILDENAFIL
     Dosage: 1 TABLET 60 MINUTES BEFORE EFFECT IS NEEDED. MI...
     Dates: start: 20240116
  10. TAMSULOSIN HYDROCHLORIDE [Concomitant]
     Active Substance: TAMSULOSIN HYDROCHLORIDE
     Dosage: TAKE ONE DAILY
     Dates: start: 20240621

REACTIONS (1)
  - Retrograde ejaculation [Recovered/Resolved]
